FAERS Safety Report 17257153 (Version 1)
Quarter: 2019Q4

REPORT INFORMATION
  Report Type: Spontaneous
  Country: US (occurrence: US)
  Receive Date: 20191217
  Receipt Date: 20191217
  Transmission Date: 20200122
  Serious: No
  Sender: FDA-Public Use
  Company Number: None

PATIENT
  Age: 49 Year
  Sex: Female

DRUGS (2)
  1. METHOTREXATE 50MG/2ML MDV, 50MG/2ML [Suspect]
     Active Substance: METHOTREXATE
     Indication: RHEUMATOID ARTHRITIS
     Route: 058
     Dates: start: 201905
  2. ORENCIA [Suspect]
     Active Substance: ABATACEPT
     Indication: RHEUMATOID ARTHRITIS
     Route: 058
     Dates: start: 201803

REACTIONS (2)
  - Malaise [None]
  - Liver disorder [None]
